FAERS Safety Report 15744512 (Version 1)
Quarter: 2018Q4

REPORT INFORMATION
  Report Type: Spontaneous
  Country: IS (occurrence: IS)
  Receive Date: 20181220
  Receipt Date: 20181220
  Transmission Date: 20190205
  Serious: Yes (Other)
  Sender: FDA-Public Use
  Company Number: IS-AMGEN-ISLSP2018179562

PATIENT
  Age: 70 Year
  Sex: Female

DRUGS (2)
  1. CELEBRA [Concomitant]
     Active Substance: CELECOXIB
     Dosage: 100 MG, UNK
  2. PROLIA [Suspect]
     Active Substance: DENOSUMAB
     Indication: OSTEOPOROSIS
     Dosage: 60 MG, UNK (60 MG;IN TOTAL)
     Route: 065
     Dates: start: 20180815

REACTIONS (1)
  - Diverticulitis [Not Recovered/Not Resolved]
